FAERS Safety Report 4937249-5 (Version None)
Quarter: 2006Q1

REPORT INFORMATION
  Report Type: 
  Country: None (occurrence: None)
  Receive Date: 20060302
  Receipt Date: 20060220
  Transmission Date: 20060701
  Serious: Yes (Other)
  Sender: FDA-Public Use
  Company Number: FR200512001500

PATIENT
  Age: 64 Year
  Sex: Female
  Weight: 64 kg

DRUGS (3)
  1. GEMZAR [Suspect]
     Indication: BREAST CANCER METASTATIC
     Dosage: 1000 MG/M2, OTHER, INTRAVENOUS
     Route: 042
     Dates: start: 20050823, end: 20051117
  2. PARAPLATIN [Concomitant]
  3. ZOMETA [Concomitant]

REACTIONS (2)
  - PERIPHERAL ISCHAEMIA [None]
  - SKIN NECROSIS [None]
